FAERS Safety Report 4624012-8 (Version None)
Quarter: 2005Q1

REPORT INFORMATION
  Report Type: 
  Country: None (occurrence: None)
  Receive Date: 20050329
  Receipt Date: 20050315
  Transmission Date: 20050727
  Serious: Yes (Hospitalization, Other)
  Sender: FDA-Public Use
  Company Number: 2005-00063

PATIENT
  Age: 69 Year
  Sex: Male

DRUGS (10)
  1. VELCADE [Suspect]
     Indication: MULTIPLE MYELOMA
     Dosage: 2.54 MG
     Dates: start: 20041119, end: 20041119
  2. THYROXIN (LEVOTHYROXINE SODIUM) [Concomitant]
  3. RANITIDINE [Concomitant]
  4. SWEATOSAN (SALVIA) [Concomitant]
  5. RAMIPRIL [Concomitant]
  6. POTASSIUM CHLORIDE [Concomitant]
  7. OXYBUTYNIN [Concomitant]
  8. MAGNESIUM [Concomitant]
  9. METOCLOPRAMIDE [Concomitant]
  10. MORPHINE [Concomitant]

REACTIONS (8)
  - ANXIETY [None]
  - DELIRIUM [None]
  - DISEASE PROGRESSION [None]
  - HALLUCINATION, AUDITORY [None]
  - HALLUCINATION, VISUAL [None]
  - NIGHTMARE [None]
  - PANIC ATTACK [None]
  - REFUSAL OF TREATMENT BY PATIENT [None]
